FAERS Safety Report 8979275 (Version 1)
Quarter: 2012Q4

REPORT INFORMATION
  Report Type: Report from Study
  Country: CN (occurrence: CN)
  Receive Date: 20121221
  Receipt Date: 20121221
  Transmission Date: 20130627
  Serious: Yes (Death)
  Sender: FDA-Public Use
  Company Number: CN-ASTELLAS-2012JP011447

PATIENT
  Age: 45 Year
  Sex: Male

DRUGS (2)
  1. TACROLIMUS CAPSULES [Suspect]
     Indication: LIVER TRANSPLANT
     Dosage: 1 mg, bid
     Route: 048
     Dates: start: 20110701
  2. MYCOPHENOLATE MOFETIL [Concomitant]
     Route: 048

REACTIONS (1)
  - Death [Fatal]
